FAERS Safety Report 25847280 (Version 1)
Quarter: 2025Q3

REPORT INFORMATION
  Report Type: Spontaneous
  Country: GB (occurrence: GB)
  Receive Date: 20250925
  Receipt Date: 20250925
  Transmission Date: 20251021
  Serious: Yes (Other)
  Sender: GUERBET
  Company Number: None

PATIENT
  Sex: Female

DRUGS (2)
  1. OPTIRAY [Suspect]
     Active Substance: IOVERSOL
     Indication: Computerised tomogram
     Dosage: PRESCRIBED AS PER CT SCAN PROTOCOL.
  2. FUROSEMIDE [Suspect]
     Active Substance: FUROSEMIDE
     Indication: Product used for unknown indication

REACTIONS (5)
  - Chest discomfort [Recovered/Resolved]
  - Urticaria [Recovering/Resolving]
  - Pruritus [Recovered/Resolved]
  - Rash [Recovered/Resolved]
  - Cough [Recovered/Resolved]
